FAERS Safety Report 8602574-3 (Version None)
Quarter: 2012Q3

REPORT INFORMATION
  Report Type: 
  Country: None (occurrence: None)
  Receive Date: 20120817
  Receipt Date: 20120815
  Transmission Date: 20120928
  Serious: Yes (Hospitalization, Other)
  Sender: FDA-Public Use
  Company Number: PHHY2012AU066870

PATIENT
  Sex: Male

DRUGS (3)
  1. CLOZARIL [Suspect]
     Indication: SCHIZOPHRENIA, PARANOID TYPE
     Dosage: 300 MG, (NOCTE)
     Route: 048
     Dates: start: 20061204
  2. CLOMIPRAMINE HCL [Concomitant]
     Dosage: UNK UKN, UNK
  3. CLOZARIL [Suspect]
     Dosage: 400 MG
     Dates: end: 20120802

REACTIONS (6)
  - ACUTE PSYCHOSIS [None]
  - MYOCARDITIS [None]
  - TACHYCARDIA [None]
  - LEFT VENTRICULAR DYSFUNCTION [None]
  - ELECTROCARDIOGRAM ABNORMAL [None]
  - ELECTROCARDIOGRAM QT PROLONGED [None]
